FAERS Safety Report 19678204 (Version 2)
Quarter: 2022Q1

REPORT INFORMATION
  Report Type: Spontaneous
  Country: US (occurrence: US)
  Receive Date: 20210809
  Receipt Date: 20220216
  Transmission Date: 20220424
  Serious: Yes (Other)
  Sender: FDA-Public Use
  Company Number: US-GILEAD-2021-0542312

PATIENT
  Sex: Female
  Weight: 108.84 kg

DRUGS (38)
  1. STRIBILD [Suspect]
     Active Substance: COBICISTAT\ELVITEGRAVIR\EMTRICITABINE\TENOFOVIR DISOPROXIL FUMARATE
     Indication: HIV infection
     Dosage: UNK
     Route: 048
     Dates: start: 20160211, end: 201704
  2. GENVOYA [Concomitant]
     Active Substance: COBICISTAT\ELVITEGRAVIR\EMTRICITABINE\TENOFOVIR ALAFENAMIDE FUMARATE
  3. ALBUTEROL [Concomitant]
     Active Substance: ALBUTEROL
  4. AMLODIPINE [Concomitant]
     Active Substance: AMLODIPINE BESYLATE
  5. ARIPIPRAZOLE [Concomitant]
     Active Substance: ARIPIPRAZOLE
  6. ASPIRIN [Concomitant]
     Active Substance: ASPIRIN
  7. ATORVASTATIN [Concomitant]
     Active Substance: ATORVASTATIN
  8. AZITHROMYCIN [Concomitant]
     Active Substance: AZITHROMYCIN
  9. CYANOCOBALAMIN [Concomitant]
     Active Substance: CYANOCOBALAMIN
  10. BUTALBITAL AND ACETAMINOPHEN [Concomitant]
     Active Substance: ACETAMINOPHEN\BUTALBITAL
  11. CEPHALEXIN [Concomitant]
     Active Substance: CEPHALEXIN
  12. COMBIVENT [Concomitant]
     Active Substance: ALBUTEROL SULFATE\IPRATROPIUM BROMIDE
  13. DICLOFENAC [Concomitant]
     Active Substance: DICLOFENAC
  14. ATROPINE\DIPHENOXYLATE [Concomitant]
     Active Substance: ATROPINE\DIPHENOXYLATE
  15. ESCITALOPRAM [Concomitant]
     Active Substance: ESCITALOPRAM OXALATE
  16. EZETIMIBE [Concomitant]
     Active Substance: EZETIMIBE
  17. FLUTICASONE [Concomitant]
     Active Substance: FLUTICASONE
  18. FUROSEMIDE [Concomitant]
     Active Substance: FUROSEMIDE
  19. HYDROCODONE [Concomitant]
     Active Substance: HYDROCODONE
  20. IPRATROPIUM [Concomitant]
     Active Substance: IPRATROPIUM
  21. KETOROLAC [Concomitant]
     Active Substance: KETOROLAC TROMETHAMINE
  22. LASIX [Concomitant]
     Active Substance: FUROSEMIDE
  23. LEVOTHYROXINE [Concomitant]
     Active Substance: LEVOTHYROXINE
  24. LISINOPRIL [Concomitant]
     Active Substance: LISINOPRIL
  25. METOPROLOL [Concomitant]
     Active Substance: METOPROLOL
  26. NEOMYCIN HYDROCHLORIDE;POLYMYXIN B SULFATE [Concomitant]
  27. NICOTROL [Concomitant]
     Active Substance: NICOTINE
  28. NITROGLYCERIN [Concomitant]
     Active Substance: NITROGLYCERIN
  29. NITROSTAT [Concomitant]
     Active Substance: NITROGLYCERIN
  30. OFLOXACIN [Concomitant]
     Active Substance: OFLOXACIN
  31. ONDANSETRON [Concomitant]
     Active Substance: ONDANSETRON
  32. OXYBUTYNIN [Concomitant]
     Active Substance: OXYBUTYNIN
  33. PEG [MACROGOL] [Concomitant]
  34. SERTRALINE [Concomitant]
     Active Substance: SERTRALINE HYDROCHLORIDE
  35. SYMBICORT [Concomitant]
     Active Substance: BUDESONIDE\FORMOTEROL FUMARATE DIHYDRATE
  36. TOBRAMYCIN [Concomitant]
     Active Substance: TOBRAMYCIN
  37. TRAMADOL [Concomitant]
     Active Substance: TRAMADOL
  38. ZOLPIDEM [Concomitant]
     Active Substance: ZOLPIDEM TARTRATE

REACTIONS (17)
  - Chronic kidney disease [Unknown]
  - Bone density decreased [Unknown]
  - Osteopenia [Not Recovered/Not Resolved]
  - Emotional distress [Not Recovered/Not Resolved]
  - Anxiety [Not Recovered/Not Resolved]
  - Anhedonia [Not Recovered/Not Resolved]
  - Pain [Not Recovered/Not Resolved]
  - Back pain [Unknown]
  - Arthralgia [Unknown]
  - Pain in extremity [Unknown]
  - Arthralgia [Unknown]
  - Dysstasia [Unknown]
  - Nausea [Unknown]
  - Mobility decreased [Not Recovered/Not Resolved]
  - Post-traumatic stress disorder [Not Recovered/Not Resolved]
  - Vomiting [Unknown]
  - Depression [Not Recovered/Not Resolved]

NARRATIVE: CASE EVENT DATE: 20170101
